FAERS Safety Report 15587654 (Version 2)
Quarter: 2018Q4

REPORT INFORMATION
  Report Type: Spontaneous
  Country: JP (occurrence: JP)
  Receive Date: 20181105
  Receipt Date: 20181105
  Transmission Date: 20190205
  Serious: Yes (Other)
  Sender: FDA-Public Use
  Company Number: PHHY2018JP142092

PATIENT
  Age: 15 Year
  Sex: Male

DRUGS (12)
  1. PREDNISOLONE. [Suspect]
     Active Substance: PREDNISOLONE
     Indication: ACUTE GRAFT VERSUS HOST DISEASE IN LIVER
  2. MYCOPHENOLATE MOFETIL. [Concomitant]
     Active Substance: MYCOPHENOLATE MOFETIL
     Indication: ACUTE GRAFT VERSUS HOST DISEASE IN LIVER
  3. RITUXIMAB. [Concomitant]
     Active Substance: RITUXIMAB
     Indication: ACUTE GRAFT VERSUS HOST DISEASE IN SKIN
     Route: 065
  4. ETANERCEPT [Concomitant]
     Active Substance: ETANERCEPT
     Indication: ACUTE GRAFT VERSUS HOST DISEASE IN LIVER
  5. RITUXIMAB. [Concomitant]
     Active Substance: RITUXIMAB
     Indication: ACUTE GRAFT VERSUS HOST DISEASE IN INTESTINE
  6. PREDNISOLONE. [Suspect]
     Active Substance: PREDNISOLONE
     Indication: ACUTE GRAFT VERSUS HOST DISEASE IN INTESTINE
  7. MYCOPHENOLATE MOFETIL. [Concomitant]
     Active Substance: MYCOPHENOLATE MOFETIL
     Indication: ACUTE GRAFT VERSUS HOST DISEASE IN SKIN
     Route: 065
  8. MYCOPHENOLATE MOFETIL. [Concomitant]
     Active Substance: MYCOPHENOLATE MOFETIL
     Indication: ACUTE GRAFT VERSUS HOST DISEASE IN INTESTINE
  9. ETANERCEPT [Concomitant]
     Active Substance: ETANERCEPT
     Indication: ACUTE GRAFT VERSUS HOST DISEASE IN SKIN
     Route: 065
  10. PREDNISOLONE. [Suspect]
     Active Substance: PREDNISOLONE
     Indication: ACUTE GRAFT VERSUS HOST DISEASE IN SKIN
     Dosage: 80 MG, QD
     Route: 065
  11. ETANERCEPT [Concomitant]
     Active Substance: ETANERCEPT
     Indication: ACUTE GRAFT VERSUS HOST DISEASE IN INTESTINE
  12. RITUXIMAB. [Concomitant]
     Active Substance: RITUXIMAB
     Indication: ACUTE GRAFT VERSUS HOST DISEASE IN LIVER

REACTIONS (1)
  - Type 1 diabetes mellitus [Unknown]
